FAERS Safety Report 7579861-3 (Version None)
Quarter: 2011Q2

REPORT INFORMATION
  Report Type: 
  Country: None (occurrence: None)
  Receive Date: 20110622
  Receipt Date: 20110613
  Transmission Date: 20111010
  Serious: Yes (Death)
  Sender: FDA-Public Use
  Company Number: B0727122A

PATIENT
  Age: 49 Year
  Sex: Male
  Weight: 94.8018 kg

DRUGS (5)
  1. IMMUNE GLOBULIN INTRAVENOUS (HUMAN) [Concomitant]
  2. CEFTRIAXONE [Concomitant]
  3. PREDNISONE [Concomitant]
  4. ACYCLOVIR [Suspect]
     Indication: HERPES ZOSTER
  5. PHENOXYMETHYLPENICILLIN [Concomitant]

REACTIONS (2)
  - TREATMENT FAILURE [None]
  - MULTI-ORGAN FAILURE [None]
